FAERS Safety Report 16306096 (Version 1)
Quarter: 2019Q2

REPORT INFORMATION
  Report Type: Report from Study
  Country: US (occurrence: US)
  Receive Date: 20190513
  Receipt Date: 20190513
  Transmission Date: 20190711
  Serious: Yes (Hospitalization, Other)
  Sender: FDA-Public Use
  Company Number: US-BRISTOL-MYERS SQUIBB COMPANY-BMS-2019-045981

PATIENT
  Age: 53 Year
  Sex: Male
  Weight: 60.3 kg

DRUGS (1)
  1. NIVOLUMAB [Suspect]
     Active Substance: NIVOLUMAB
     Indication: LARYNGEAL SQUAMOUS CELL CARCINOMA
     Dosage: 240 MILLIGRAM, Q2WK
     Route: 042
     Dates: start: 20190404

REACTIONS (8)
  - Asthenia [Unknown]
  - Nausea [Unknown]
  - Dizziness [Unknown]
  - Loss of consciousness [Unknown]
  - Constipation [Unknown]
  - Pyrexia [Unknown]
  - Dysphagia [Unknown]
  - Failure to thrive [Unknown]

NARRATIVE: CASE EVENT DATE: 20190503
